FAERS Safety Report 9219334 (Version 1)
Quarter: 2013Q1

REPORT INFORMATION
  Report Type: Spontaneous
  Country: US (occurrence: US)
  Receive Date: 20120830
  Receipt Date: 20120830
  Transmission Date: 20140127
  Serious: Yes (Hospitalization)
  Sender: FDA-Public Use
  Company Number: PHEH2011US03054

PATIENT
  Age: 66 Year
  Sex: Male

DRUGS (2)
  1. SANDOSTATIN LAR DEPOT [Suspect]
     Indication: SMALL INTESTINE CARCINOMA
  2. SANDOSTATIN LAR DEPOT [Suspect]
     Indication: CARCINOID SYNDROME

REACTIONS (2)
  - Myocardial infarction [None]
  - Hypertension [None]
